FAERS Safety Report 9495605 (Version 2)
Quarter: 2014Q1

REPORT INFORMATION
  Report Type: Spontaneous
  Country: GB (occurrence: GB)
  Receive Date: 20130903
  Receipt Date: 20140130
  Transmission Date: 20141002
  Serious: Yes (Hospitalization)
  Sender: FDA-Public Use
  Company Number: GB-BAUSCH-BL-2013-004814

PATIENT
  Age: 68 Year
  Sex: Female
  Weight: 60 kg

DRUGS (13)
  1. DEXAMETHASONE [Suspect]
     Indication: PLASMA CELL MYELOMA
     Route: 065
     Dates: start: 20121114, end: 20130201
  2. REVLIMID [Suspect]
     Indication: PLASMA CELL MYELOMA
     Route: 048
     Dates: start: 20121114, end: 20130122
  3. REVLIMID [Suspect]
     Route: 048
     Dates: start: 20130208
  4. REVLIMID [Suspect]
     Dosage: UNKNOWN
     Route: 048
     Dates: start: 20130322
  5. REVLIMID [Suspect]
     Dosage: UNKNOWN
     Route: 048
     Dates: start: 201304
  6. AMITRIPTYLINE [Concomitant]
     Indication: NEURALGIA
     Route: 065
  7. ASPIRINE [Concomitant]
     Indication: THROMBOSIS PROPHYLAXIS
     Route: 065
  8. CALCEOS [Concomitant]
     Indication: MINERAL SUPPLEMENTATION
     Route: 065
  9. OMEPRAZOLE [Concomitant]
     Indication: PROPHYLAXIS
     Route: 065
  10. PARACETAMOL [Concomitant]
     Indication: PYREXIA
     Route: 065
  11. SALBUTAMOL [Concomitant]
     Indication: ASTHMA
     Route: 065
  12. SERETIDE [Concomitant]
     Indication: ASTHMA
     Route: 065
  13. ZOMETA [Concomitant]
     Indication: PLASMA CELL MYELOMA
     Route: 065
     Dates: start: 20110816

REACTIONS (2)
  - Infective exacerbation of bronchiectasis [Recovered/Resolved]
  - Lower respiratory tract infection [Recovered/Resolved]
